FAERS Safety Report 9918201 (Version 2)
Quarter: 2014Q2

REPORT INFORMATION
  Report Type: Report from Study
  Country: ID (occurrence: ID)
  Receive Date: 20140223
  Receipt Date: 20140616
  Transmission Date: 20141212
  Serious: Yes (Death)
  Sender: FDA-Public Use
  Company Number: ID-ROCHE-1353883

PATIENT
  Age: 49 Year
  Sex: Female

DRUGS (1)
  1. AVASTIN [Suspect]
     Indication: LUNG NEOPLASM MALIGNANT
     Route: 065
     Dates: start: 20101210

REACTIONS (2)
  - Death [Fatal]
  - Off label use [Unknown]
